FAERS Safety Report 5706416-5 (Version None)
Quarter: 2008Q2

REPORT INFORMATION
  Report Type: 
  Country: None (occurrence: None)
  Receive Date: 20080411
  Receipt Date: 20080402
  Transmission Date: 20081010
  Serious: Yes (Other)
  Sender: FDA-Public Use
  Company Number: GXKR2008JP03246

PATIENT
  Age: 16 Year
  Sex: Male
  Weight: 51 kg

DRUGS (5)
  1. CYCLOSPORINE [Suspect]
     Indication: NEPHROTIC SYNDROME
     Dosage: SEE IMAGE
  2. PREDNISOLONE [Suspect]
     Indication: NEPHROTIC SYNDROME
     Dosage: HIGH DOSE, ORAL; 20 MG/D ALTERNATE DAYS, ORAL; 30 MG/DAY, ORAL
     Route: 048
  3. METHYLPREDNISOLONE [Suspect]
     Indication: NEPHROTIC SYNDROME
     Dosage: SEE IMAGE
     Route: 042
     Dates: start: 20050512
  4. MIZORIBINE (MIZORIBINE) [Concomitant]
  5. HEPARIN [Concomitant]

REACTIONS (5)
  - ABDOMINAL PAIN [None]
  - COLITIS ISCHAEMIC [None]
  - DIARRHOEA HAEMORRHAGIC [None]
  - DISEASE RECURRENCE [None]
  - NEPHROTIC SYNDROME [None]
